FAERS Safety Report 9485041 (Version 1)
Quarter: 2013Q3

REPORT INFORMATION
  Report Type: Spontaneous
  Country: US (occurrence: US)
  Receive Date: 20130828
  Receipt Date: 20130828
  Transmission Date: 20140515
  Serious: No
  Sender: FDA-Public Use
  Company Number: US-ABBOTT-13P-163-1106000-00

PATIENT
  Sex: Male
  Weight: 86.26 kg

DRUGS (5)
  1. ANDROGEL 1.62% [Suspect]
     Indication: BLOOD TESTOSTERONE DECREASED
     Dosage: ONE PUMP TO EACH SHOULDER
     Dates: start: 201303, end: 201305
  2. ANDROGEL 1.62% [Suspect]
     Dosage: 1/2 PUMP TO EACH SHOULDER DAILY
     Dates: start: 201305
  3. VOLTAREN [Concomitant]
     Indication: ARTHRALGIA
  4. NORCO [Concomitant]
     Indication: ARTHRALGIA
  5. AMBIEN [Concomitant]
     Indication: INSOMNIA

REACTIONS (10)
  - Asthenia [Recovering/Resolving]
  - Dizziness [Recovering/Resolving]
  - Fatigue [Recovering/Resolving]
  - Myalgia [Recovering/Resolving]
  - Decreased appetite [Recovering/Resolving]
  - Insomnia [Recovering/Resolving]
  - Unevaluable event [Not Recovered/Not Resolved]
  - Impaired work ability [Not Recovered/Not Resolved]
  - Anger [Recovering/Resolving]
  - Incorrect drug dosage form administered [Unknown]
